FAERS Safety Report 18664417 (Version 1)
Quarter: 2020Q4

REPORT INFORMATION
  Report Type: Report from Study
  Country: GB (occurrence: GB)
  Receive Date: 20201225
  Receipt Date: 20201225
  Transmission Date: 20210114
  Serious: Yes (Hospitalization)
  Sender: FDA-Public Use
  Company Number: GB-ROCHE-2736752

PATIENT
  Age: 82 Year
  Sex: Female
  Weight: 57.4 kg

DRUGS (3)
  1. ATEZOLIZUMAB. [Suspect]
     Active Substance: ATEZOLIZUMAB
     Indication: NEOPLASM
     Dosage: DATE OF THE MOST RECENT DOSE OF ATEZOLIZUMAB (1200 MG) PRIOR TO SAE ONSET: 16/DEC/2020
     Route: 042
     Dates: start: 20201104
  2. IPATASERTIB. [Suspect]
     Active Substance: IPATASERTIB
     Indication: NEOPLASM
     Dosage: DATE OF THE MOST RECENT DOSE OF IPATASERTIB (400MG) PRIOR TO SAE ONSET: 16/DEC/2020
     Route: 048
     Dates: start: 20201216
  3. LOSARTAN. [Concomitant]
     Active Substance: LOSARTAN
     Indication: HYPERTENSION
     Route: 048
     Dates: start: 2012

REACTIONS (1)
  - Angina pectoris [Recovered/Resolved]

NARRATIVE: CASE EVENT DATE: 20201217
